FAERS Safety Report 16259854 (Version 3)
Quarter: 2019Q2

REPORT INFORMATION
  Report Type: Spontaneous
  Country: FR (occurrence: FR)
  Receive Date: 20190501
  Receipt Date: 20190529
  Transmission Date: 20190711
  Serious: Yes (Other)
  Sender: FDA-Public Use
  Company Number: FR-MYLANLABS-2019M1040595

PATIENT
  Age: 74 Year
  Sex: Male
  Weight: 68 kg

DRUGS (2)
  1. EFUDIX 5 % CREME [Suspect]
     Active Substance: FLUOROURACIL
     Dosage: UNK UNK, QW
     Route: 061
     Dates: end: 20190117
  2. EFUDIX 5 % CREME [Suspect]
     Active Substance: FLUOROURACIL
     Indication: ACTINIC KERATOSIS
     Dosage: 2 DOSAGE FORM, QW
     Route: 061

REACTIONS (2)
  - Influenza like illness [Recovered/Resolved]
  - Systemic inflammatory response syndrome [Recovered/Resolved]

NARRATIVE: CASE EVENT DATE: 201812
